FAERS Safety Report 8619560 (Version 2)
Quarter: 2012Q4

REPORT INFORMATION
  Report Type: 
  Country: US (occurrence: US)
  Receive Date: 20120618
  Receipt Date: 20120918
  Transmission Date: 20130627
  Serious: Yes (Hospitalization, Other)
  Sender: FDA-Public Use
  Company Number: PHEH2012US005435

PATIENT
  Age: 76 Year
  Sex: Female
  Weight: 73 kg

DRUGS (18)
  1. GILENYA [Suspect]
     Indication: MULTIPLE SCLEROSIS
     Dosage: 0.5 mg, QD
     Route: 048
     Dates: start: 20120307, end: 20120520
  2. GILENYA [Suspect]
     Dosage: 0.5 mg, QD
     Route: 048
     Dates: start: 20120524
  3. TOVIAZ [Concomitant]
     Dosage: 8 ug, QD
  4. GAVISCON [Concomitant]
     Dosage: SODIUM ALGINATE 8 mg/ SODIUM BICARBONATE 5 ml
  5. COZAAR [Concomitant]
     Dosage: 50 mg, BID
     Route: 048
  6. VITAMIN D [Concomitant]
     Dosage: 200 U, QD
  7. MULTIVITAMINS [Concomitant]
     Dosage: UNK UKN, UNK
     Route: 048
  8. VITAMIN E [Concomitant]
     Dosage: 200 U, QD
  9. CALCIUM WITH VITAMIN D [Concomitant]
     Dosage: 600 mg / 200 mg, daily
  10. ASPIRIN [Concomitant]
     Dosage: 81 mg, QD
     Route: 048
  11. BACLOFEN [Concomitant]
     Dosage: 5 mg, 5QD
  12. PROVIGIL [Concomitant]
     Dosage: 100 mg, QD
     Route: 048
  13. VITAMIN B12 [Concomitant]
     Dosage: 500 ug, QD
  14. ZOCOR [Concomitant]
     Dosage: 20 mg, QD
  15. PAXIL [Concomitant]
     Dosage: 20 mg, QD
  16. COLACE [Concomitant]
     Dosage: 100 mg, QD
  17. RESTASIS [Concomitant]
     Route: 047
  18. LASIX [Concomitant]
     Dosage: 20 mg, PRN

REACTIONS (8)
  - Hypertension [Not Recovered/Not Resolved]
  - Chest pain [Unknown]
  - Dyspnoea [Unknown]
  - Bradycardia [Recovered/Resolved]
  - Gastrooesophageal reflux disease [Unknown]
  - Nausea [Recovered/Resolved]
  - Dizziness [Recovered/Resolved]
  - Wheezing [Recovering/Resolving]
